FAERS Safety Report 9624271 (Version 2)
Quarter: 2013Q4

REPORT INFORMATION
  Report Type: Spontaneous
  Country: US (occurrence: US)
  Receive Date: 20131015
  Receipt Date: 20131015
  Transmission Date: 20140711
  Serious: Yes (Hospitalization, Disabling, Other)
  Sender: FDA-Public Use
  Company Number: US-009507513-1012USA01252

PATIENT
  Sex: Female

DRUGS (12)
  1. FOSAMAX [Suspect]
     Indication: OSTEOPOROSIS
     Dosage: 70 MG, QW
     Route: 048
     Dates: start: 1997, end: 201008
  2. CARDURA [Concomitant]
  3. ASPIRIN [Concomitant]
  4. MK-9359 [Concomitant]
  5. PRILOSEC [Concomitant]
  6. ELAVIL [Concomitant]
     Route: 048
  7. MAXIDE [Concomitant]
  8. BESPAR [Concomitant]
  9. VITAMIN D (UNSPECIFIED) [Concomitant]
  10. VITAMIN E [Concomitant]
  11. OMEGA-3 MARINE TRIGLYCERIDES [Concomitant]
  12. CALCIUM (UNSPECIFIED) [Concomitant]

REACTIONS (3)
  - Arthropathy [Unknown]
  - Femur fracture [Recovering/Resolving]
  - Femur fracture [Not Recovered/Not Resolved]
